FAERS Safety Report 20081840 (Version 1)
Quarter: 2021Q4

REPORT INFORMATION
  Report Type: Spontaneous
  Country: DE (occurrence: DE)
  Receive Date: 20211117
  Receipt Date: 20211117
  Transmission Date: 20220303
  Serious: Yes (Hospitalization)
  Sender: FDA-Public Use
  Company Number: DE-ADRED-07145-01

PATIENT
  Age: 50 Year
  Sex: Female
  Weight: 81 kg

DRUGS (4)
  1. IBUPROFEN [Suspect]
     Active Substance: IBUPROFEN
     Indication: Product used for unknown indication
     Dosage: 600 MG, BEI BEDARF, TABLETTEN
     Route: 048
  2. CALCIUM VITAMIN D3 ACIS [Concomitant]
     Dosage: 600|40 MG, 0-0-1-0, BRAUSETABLETTEN
     Route: 048
  3. LEVOTHYROXINUM NATRICUM [Concomitant]
     Dosage: 75 ?G, 1-0-0-0, TABLETTEN
     Route: 048
  4. SUMATRIPTAN SUCCINATE [Concomitant]
     Active Substance: SUMATRIPTAN SUCCINATE
     Dosage: BEI BEDARF, TABLETTEN
     Route: 048

REACTIONS (4)
  - Transaminases increased [Recovering/Resolving]
  - Abdominal pain upper [Recovering/Resolving]
  - Hyperhidrosis [Recovering/Resolving]
  - Abdominal pain [Recovering/Resolving]
